FAERS Safety Report 13029080 (Version 2)
Quarter: 2017Q1

REPORT INFORMATION
  Report Type: Spontaneous
  Country: FR (occurrence: FR)
  Receive Date: 20161215
  Receipt Date: 20170103
  Transmission Date: 20170428
  Serious: Yes (Other)
  Sender: FDA-Public Use
  Company Number: FR-BAXTER-2016BAX062415

PATIENT
  Sex: Male

DRUGS (1)
  1. SUPRANE [Suspect]
     Active Substance: DESFLURANE
     Indication: OCCUPATIONAL EXPOSURE TO PRODUCT
     Route: 047
     Dates: start: 20161026, end: 20161026

REACTIONS (5)
  - Occupational exposure to product [Recovered/Resolved]
  - Eye irritation [Recovered/Resolved]
  - Conjunctival ulcer [Recovered/Resolved]
  - Ulcerative keratitis [Recovered/Resolved]
  - Exposure via eye contact [Recovered/Resolved]

NARRATIVE: CASE EVENT DATE: 20161026
